FAERS Safety Report 16044436 (Version 1)
Quarter: 2019Q1

REPORT INFORMATION
  Report Type: Report from Study
  Country: IT (occurrence: IT)
  Receive Date: 20190306
  Receipt Date: 20190306
  Transmission Date: 20190418
  Serious: Yes (Other)
  Sender: FDA-Public Use
  Company Number: IT-MYLANLABS-2019M1020573

PATIENT
  Age: 43 Year
  Sex: Female

DRUGS (2)
  1. SIRDALUD [Suspect]
     Active Substance: TIZANIDINE
     Indication: BACK PAIN
     Dosage: 2 DOSAGE FORM, QD
     Route: 048
     Dates: start: 20180626, end: 20180629
  2. BRUFEN 600 MG COMPRESSE RIVESTITE [Suspect]
     Active Substance: IBUPROFEN
     Indication: BACK PAIN
     Dosage: 2 DOSAGE FORM, QD
     Route: 048
     Dates: start: 20180626, end: 20180629

REACTIONS (2)
  - Drug ineffective [Recovering/Resolving]
  - Back pain [Recovering/Resolving]

NARRATIVE: CASE EVENT DATE: 20180626
